FAERS Safety Report 10525450 (Version 1)
Quarter: 2014Q4

REPORT INFORMATION
  Report Type: Spontaneous
  Country: CA (occurrence: None)
  Receive Date: 20141015
  Receipt Date: 20141015
  Transmission Date: 20150528
  Serious: Yes (Life-Threatening)
  Sender: FDA-Public Use
  Company Number: FK201403952

PATIENT
  Sex: Male
  Weight: 160 kg

DRUGS (12)
  1. FUROSEMIDE. [Concomitant]
     Active Substance: FUROSEMIDE
  2. GLYBURIDE. [Concomitant]
     Active Substance: GLYBURIDE
  3. INSULIN [Concomitant]
     Active Substance: INSULIN NOS
  4. DOCUSATE [Concomitant]
     Active Substance: DOCUSATE
  5. FRAGMIN [Concomitant]
     Active Substance: DALTEPARIN SODIUM
  6. CIPROFLOXACIN. [Concomitant]
     Active Substance: CIPROFLOXACIN
  7. METFORMIN [Concomitant]
     Active Substance: METFORMIN HYDROCHLORIDE
  8. TAZOCIN (PIP/TAZO) [Concomitant]
     Active Substance: PIPERACILLIN SODIUM\TAZOBACTAM SODIUM
  9. STERILE VANCOMYCIN HYDROCHLORIDE [Suspect]
     Active Substance: VANCOMYCIN HYDROCHLORIDE
     Indication: PRODUCT USED FOR UNKNOWN INDICATION
     Dosage: 20 ML SINGLE DOSE VIALS
     Route: 042
  10. MORPHINE [Concomitant]
     Active Substance: MORPHINE
  11. SENOKOT (SENA ALEXANDRINA) [Concomitant]
  12. TOPAMAX [Concomitant]
     Active Substance: TOPIRAMATE

REACTIONS (1)
  - Renal failure [None]
